FAERS Safety Report 6691090-4 (Version None)
Quarter: 2010Q2

REPORT INFORMATION
  Report Type: 
  Country: None (occurrence: None)
  Receive Date: 20100422
  Receipt Date: 20100412
  Transmission Date: 20101027
  Serious: Yes (Hospitalization)
  Sender: FDA-Public Use
  Company Number: US-BIOGENIDEC-2008BI002152

PATIENT
  Age: 39 Year
  Sex: Female
  Weight: 90 kg

DRUGS (2)
  1. AVONEX [Suspect]
     Indication: MULTIPLE SCLEROSIS
     Route: 030
     Dates: start: 20070923, end: 20081001
  2. AVONEX [Suspect]
     Route: 030
     Dates: start: 20091120

REACTIONS (4)
  - BRAIN NEOPLASM MALIGNANT [None]
  - CONFUSIONAL STATE [None]
  - COORDINATION ABNORMAL [None]
  - MEMORY IMPAIRMENT [None]
